FAERS Safety Report 8355281-9 (Version None)
Quarter: 2012Q2

REPORT INFORMATION
  Report Type: 
  Country: None (occurrence: None)
  Receive Date: 20120511
  Receipt Date: 20120508
  Transmission Date: 20120825
  Serious: Yes (Death, Disabling)
  Sender: FDA-Public Use
  Company Number: AU-ACTELION-A-CH2011-57878

PATIENT
  Sex: Female
  Weight: 74 kg

DRUGS (4)
  1. TRACLEER [Suspect]
     Indication: PULMONARY ARTERIAL HYPERTENSION
     Dosage: 125 MG, BID
     Route: 048
     Dates: start: 20110224
  2. TRACLEER [Suspect]
     Dosage: 62.5 MG, BID
     Route: 048
     Dates: start: 20110124, end: 20110223
  3. NIFEDIPINE [Concomitant]
  4. WARFARIN SODIUM [Concomitant]

REACTIONS (11)
  - ALANINE AMINOTRANSFERASE INCREASED [None]
  - BLOOD BILIRUBIN INCREASED [None]
  - MALAISE [None]
  - PULMONARY ARTERIAL HYPERTENSION [None]
  - ASPARTATE AMINOTRANSFERASE INCREASED [None]
  - EXERCISE TOLERANCE DECREASED [None]
  - OEDEMA PERIPHERAL [None]
  - CARDIAC ARREST [None]
  - DISEASE PROGRESSION [None]
  - LIVER FUNCTION TEST ABNORMAL [None]
  - OXYGEN SATURATION DECREASED [None]
